FAERS Safety Report 9804686 (Version 1)
Quarter: 2014Q1

REPORT INFORMATION
  Report Type: Spontaneous
  Country: MX (occurrence: MX)
  Receive Date: 20140108
  Receipt Date: 20140108
  Transmission Date: 20141002
  Serious: Yes (Death, Hospitalization)
  Sender: FDA-Public Use
  Company Number: MX-B.I. PHARMACEUTICALS,INC./RIDGEFIELD-2014-BI-00598MX

PATIENT
  Age: 65 Year
  Sex: Female
  Weight: 55 kg

DRUGS (5)
  1. DABIGATRAN [Suspect]
     Indication: HIP SURGERY
     Dates: start: 201312
  2. DABIGATRAN [Suspect]
     Indication: THROMBOSIS PROPHYLAXIS
  3. INSULIN [Concomitant]
     Indication: TYPE 2 DIABETES MELLITUS
     Dates: start: 201312
  4. METAMIZOL [Concomitant]
     Indication: PAIN
     Dates: start: 201312
  5. PARACETAMOL [Concomitant]
     Indication: PAIN

REACTIONS (3)
  - Multi-organ failure [Fatal]
  - Postoperative wound infection [Unknown]
  - Septic embolus [Unknown]
